FAERS Safety Report 8807266 (Version 2)
Quarter: 2012Q4

REPORT INFORMATION
  Report Type: 
  Country: CA (occurrence: CA)
  Receive Date: 20120925
  Receipt Date: 20121031
  Transmission Date: 20130627
  Serious: Yes (Other)
  Sender: FDA-Public Use
  Company Number: CHPA2012CA020177

PATIENT
  Age: 33 Year
  Sex: Female

DRUGS (1)
  1. PRODIEM OVERNIGHT RELIEF THERAPY [Suspect]
     Dosage: 2-3 DF, every night
     Route: 048

REACTIONS (4)
  - Drug dependence [Unknown]
  - Drug ineffective [Unknown]
  - Incorrect drug administration duration [Unknown]
  - Incorrect dose administered [Unknown]
